FAERS Safety Report 20729173 (Version 2)
Quarter: 2022Q2

REPORT INFORMATION
  Report Type: Spontaneous
  Country: CN (occurrence: CN)
  Receive Date: 20220420
  Receipt Date: 20220529
  Transmission Date: 20220721
  Serious: No
  Sender: FDA-Public Use
  Company Number: CN-BRISTOL-MYERS SQUIBB COMPANY-2022-021218

PATIENT
  Age: 65 Year
  Sex: Male
  Weight: 66 kg

DRUGS (1)
  1. AZACITIDINE [Suspect]
     Active Substance: AZACITIDINE
     Indication: Acute myeloid leukaemia
     Dosage: DOSE : 100 MG;     FREQ : ONCE A SINGLE DOSE, REFER TO EXCEL FOR FULL DETAILS.
     Route: 058
     Dates: start: 20220325, end: 20220325

REACTIONS (5)
  - Discomfort [Recovered/Resolved]
  - Tremor [Recovered/Resolved]
  - Palpitations [Recovered/Resolved]
  - Erythema [Recovered/Resolved]
  - Injection site swelling [Recovered/Resolved]

NARRATIVE: CASE EVENT DATE: 20220325
